FAERS Safety Report 15216665 (Version 1)
Quarter: 2018Q3

REPORT INFORMATION
  Report Type: Spontaneous
  Country: US (occurrence: US)
  Receive Date: 20180727
  Receipt Date: 20180727
  Transmission Date: 20181010
  Serious: Yes (Hospitalization)
  Sender: FDA-Public Use
  Company Number: None

PATIENT
  Age: 26 Year
  Sex: Male
  Weight: 69.75 kg

DRUGS (2)
  1. KRATOM [Suspect]
     Active Substance: MITRAGYNINE\HERBALS
     Indication: ANXIETY
     Route: 048
  2. KRATOM [Suspect]
     Active Substance: MITRAGYNINE\HERBALS
     Indication: DEPRESSION
     Route: 048

REACTIONS (4)
  - Delusion [None]
  - Drug dependence [None]
  - Hallucination [None]
  - Psychotic disorder [None]

NARRATIVE: CASE EVENT DATE: 20180727
